FAERS Safety Report 7414812-3 (Version None)
Quarter: 2011Q2

REPORT INFORMATION
  Report Type: 
  Country: None (occurrence: None)
  Receive Date: 20110414
  Receipt Date: 20101209
  Transmission Date: 20111010
  Serious: No
  Sender: FDA-Public Use
  Company Number: A0899382A

PATIENT
  Sex: Male

DRUGS (1)
  1. LUXIQ [Suspect]
     Route: 061

REACTIONS (6)
  - SEBORRHOEIC DERMATITIS [None]
  - SKIN EXFOLIATION [None]
  - CONDITION AGGRAVATED [None]
  - PAIN [None]
  - RASH [None]
  - DRUG INEFFECTIVE [None]
